FAERS Safety Report 23441484 (Version 2)
Quarter: 2024Q2

REPORT INFORMATION
  Report Type: Spontaneous
  Country: US (occurrence: US)
  Receive Date: 20240125
  Receipt Date: 20240404
  Transmission Date: 20240716
  Serious: No
  Sender: FDA-Public Use
  Company Number: US-BAUSCHBL-2024BNL000770

PATIENT
  Sex: Female

DRUGS (2)
  1. LUMIFY [Suspect]
     Active Substance: BRIMONIDINE TARTRATE
     Indication: Product used for unknown indication
     Route: 047
  2. LUMIFY [Suspect]
     Active Substance: BRIMONIDINE TARTRATE
     Route: 047

REACTIONS (4)
  - Burning sensation [Unknown]
  - Product lot number issue [Unknown]
  - Product expiration date issue [Unknown]
  - Product container seal issue [Unknown]

NARRATIVE: CASE EVENT DATE: 20240116
